FAERS Safety Report 6532983-8 (Version None)
Quarter: 2010Q1

REPORT INFORMATION
  Report Type: 
  Country: None (occurrence: None)
  Receive Date: 20100111
  Receipt Date: 20100105
  Transmission Date: 20100710
  Serious: Yes (Other)
  Sender: FDA-Public Use
  Company Number: PHHY2010CA00672

PATIENT

DRUGS (1)
  1. ALISKIREN ALI+ [Suspect]
     Route: 065

REACTIONS (1)
  - OEDEMA PERIPHERAL [None]
